FAERS Safety Report 11915472 (Version 1)
Quarter: 2016Q1

REPORT INFORMATION
  Report Type: Spontaneous
  Country: US (occurrence: None)
  Receive Date: 20160113
  Receipt Date: 20160113
  Transmission Date: 20160526
  Serious: Yes (Other)
  Sender: FDA-Public Use
  Company Number: None

PATIENT
  Age: 60 Year
  Sex: Female
  Weight: 66 kg

DRUGS (11)
  1. LEVOTHYROXINE. [Concomitant]
     Active Substance: LEVOTHYROXINE
  2. KETOCONAZOLE. [Concomitant]
     Active Substance: KETOCONAZOLE
  3. MAGNESIUM [Concomitant]
     Active Substance: MAGNESIUM
  4. FEXOFENADINE [Suspect]
     Active Substance: FEXOFENADINE\FEXOFENADINE HYDROCHLORIDE
     Indication: SEASONAL ALLERGY
     Route: 048
  5. VITAMIN B WITH C AND FOLATE [Concomitant]
  6. VITAMIN D [Concomitant]
     Active Substance: CHOLECALCIFEROL
  7. ASPIRIN. [Concomitant]
     Active Substance: ASPIRIN
  8. FEXOFENADINE [Suspect]
     Active Substance: FEXOFENADINE\FEXOFENADINE HYDROCHLORIDE
     Indication: ALOPECIA
     Route: 048
  9. COLCHICINE. [Concomitant]
     Active Substance: COLCHICINE
  10. FEXOFENADINE [Concomitant]
     Active Substance: FEXOFENADINE\FEXOFENADINE HYDROCHLORIDE
  11. CO-Q10 [Concomitant]

REACTIONS (8)
  - Muscle spasms [None]
  - Myalgia [None]
  - Soft tissue disorder [None]
  - Sleep disorder due to general medical condition, insomnia type [None]
  - Alanine aminotransferase increased [None]
  - Aspartate aminotransferase increased [None]
  - Bone pain [None]
  - Enthesopathy [None]

NARRATIVE: CASE EVENT DATE: 20160106
